FAERS Safety Report 16648540 (Version 2)
Quarter: 2019Q3

REPORT INFORMATION
  Report Type: Report from Study
  Country: US (occurrence: US)
  Receive Date: 20190730
  Receipt Date: 20190807
  Transmission Date: 20191004
  Serious: Yes (Hospitalization)
  Sender: FDA-Public Use
  Company Number: US-PFIZER INC-261475

PATIENT
  Age: 54 Year
  Sex: Female

DRUGS (1)
  1. ADRENALINE [Suspect]
     Active Substance: EPINEPHRINE
     Indication: SYNCOPE
     Dosage: 1 MG, UNK
     Route: 042

REACTIONS (2)
  - Product administration error [Not Recovered/Not Resolved]
  - Stress cardiomyopathy [Recovering/Resolving]
